FAERS Safety Report 9894095 (Version 1)
Quarter: 2014Q1

REPORT INFORMATION
  Report Type: Spontaneous
  Country: IT (occurrence: IT)
  Receive Date: 20140213
  Receipt Date: 20140213
  Transmission Date: 20141002
  Serious: Yes (Other)
  Sender: FDA-Public Use
  Company Number: IT-TEVA-461473ISR

PATIENT
  Age: 53 Year
  Sex: Male
  Weight: 74 kg

DRUGS (5)
  1. OXALIPLATIN [Suspect]
     Indication: RECTAL CANCER
     Dosage: 160 MILLIGRAM DAILY;
     Route: 042
     Dates: start: 20131003, end: 20140122
  2. FLUOROURACIL [Suspect]
     Indication: RECTAL CANCER
     Dosage: 760 MILLIGRAM DAILY;
     Route: 040
     Dates: start: 20131003, end: 20140122
  3. FLUOROURACIL [Suspect]
     Indication: RECTAL CANCER
     Dosage: 4500 MILLIGRAM DAILY;
     Route: 041
     Dates: start: 20131003, end: 20140122
  4. AVASTIN 1 FLACONCINO DA 400 MG [Concomitant]
     Indication: PRODUCT USED FOR UNKNOWN INDICATION
     Dosage: 450 MILLIGRAM DAILY;
     Route: 042
  5. LEDERFOLIN - 175 MG POLVERE PER SOLUZIONE PER INFUSIONE [Concomitant]
     Indication: PRODUCT USED FOR UNKNOWN INDICATION
     Dosage: 380 MILLIGRAM DAILY; POWDER
     Route: 042

REACTIONS (2)
  - Neutropenia [Unknown]
  - Paraesthesia [Unknown]
